FAERS Safety Report 19955869 (Version 1)
Quarter: 2021Q4

REPORT INFORMATION
  Report Type: Report from Study
  Country: US (occurrence: US)
  Receive Date: 20211014
  Receipt Date: 20211014
  Transmission Date: 20220304
  Serious: Yes (Other)
  Sender: FDA-Public Use
  Company Number: US-JAZZ-2020-US-015432

PATIENT
  Age: 38 Year
  Sex: Female
  Weight: 74.38 kg

DRUGS (36)
  1. XYREM [Suspect]
     Active Substance: SODIUM OXYBATE
     Indication: Narcolepsy
     Dosage: 3 GRAM, BID
     Route: 048
     Dates: start: 201311, end: 201511
  2. XYREM [Suspect]
     Active Substance: SODIUM OXYBATE
     Indication: Narcolepsy
     Dosage: 4.5 GRAM, BID
     Route: 048
     Dates: start: 201511
  3. TRAMADOL HCL [Concomitant]
     Active Substance: TRAMADOL HYDROCHLORIDE
  4. GABAPENTIN [Concomitant]
     Active Substance: GABAPENTIN
  5. NORCO [Concomitant]
     Active Substance: ACETAMINOPHEN\HYDROCODONE BITARTRATE
  6. ALLEGRA ALLERGY [Concomitant]
     Active Substance: FEXOFENADINE HYDROCHLORIDE
  7. BUSPIRONE HCL [Concomitant]
     Active Substance: BUSPIRONE HYDROCHLORIDE
  8. POTASSIUM CITRATE [Concomitant]
     Active Substance: POTASSIUM CITRATE
  9. PROMETHAZINE [Concomitant]
     Active Substance: PROMETHAZINE HYDROCHLORIDE
  10. CARAFATE [Concomitant]
     Active Substance: SUCRALFATE
  11. CELEXA [Concomitant]
     Active Substance: CITALOPRAM HYDROBROMIDE
  12. DIFFERIN [Concomitant]
     Active Substance: ADAPALENE
  13. DOXYCYCLINE HYCLATE [Concomitant]
     Active Substance: DOXYCYCLINE HYCLATE
  14. FOLGARD [Concomitant]
  15. IRON [Concomitant]
     Active Substance: IRON
  16. MECLIZINE [Concomitant]
     Active Substance: MECLIZINE HYDROCHLORIDE
  17. MIRALAX [Concomitant]
     Active Substance: POLYETHYLENE GLYCOL 3350
  18. NEURONTIN [Concomitant]
     Active Substance: GABAPENTIN
  19. OMEPRAZOLE [Concomitant]
     Active Substance: OMEPRAZOLE
  20. RITALIN [Concomitant]
     Active Substance: METHYLPHENIDATE HYDROCHLORIDE
  21. SYNTHROID [Concomitant]
     Active Substance: LEVOTHYROXINE SODIUM
  22. TOPAMAX [Concomitant]
     Active Substance: TOPIRAMATE
  23. ZOFRAN [Concomitant]
     Active Substance: ONDANSETRON HYDROCHLORIDE
  24. ACETAMINOPHEN [Concomitant]
     Active Substance: ACETAMINOPHEN
  25. BOTOX [Concomitant]
     Active Substance: ONABOTULINUMTOXINA
  26. CYCLOBENZAPRINE [Concomitant]
     Active Substance: CYCLOBENZAPRINE
  27. FERROUS SULFATE [Concomitant]
     Active Substance: FERROUS SULFATE
  28. FIORICET [Concomitant]
     Active Substance: ACETAMINOPHEN\BUTALBITAL\CAFFEINE
  29. IBUPROFEN [Concomitant]
     Active Substance: IBUPROFEN
  30. LIDOCAINE HYDROCHLORIDE [Concomitant]
     Active Substance: LIDOCAINE HYDROCHLORIDE
  31. MELOXICAM [Concomitant]
     Active Substance: MELOXICAM
  32. POTASSIUM CHLORIDE [Concomitant]
     Active Substance: POTASSIUM CHLORIDE
  33. RANITIDINE [Concomitant]
     Active Substance: RANITIDINE
  34. SINGULAIR [Concomitant]
     Active Substance: MONTELUKAST SODIUM
  35. VALACYCLOVIR HYDROCHLORIDE [Concomitant]
     Active Substance: VALACYCLOVIR HYDROCHLORIDE
  36. VENTOLIN HFA [Concomitant]
     Active Substance: ALBUTEROL SULFATE

REACTIONS (9)
  - Spinal osteoarthritis [Not Recovered/Not Resolved]
  - Facet joint syndrome [Not Recovered/Not Resolved]
  - Gait disturbance [Not Recovered/Not Resolved]
  - Sciatica [Not Recovered/Not Resolved]
  - Intervertebral disc protrusion [Not Recovered/Not Resolved]
  - Asthma [Unknown]
  - Fibromyalgia [Not Recovered/Not Resolved]
  - Sacroiliitis [Not Recovered/Not Resolved]
  - Vitamin D deficiency [Not Recovered/Not Resolved]

NARRATIVE: CASE EVENT DATE: 20201001
